FAERS Safety Report 5263991-5 (Version None)
Quarter: 2007Q1

REPORT INFORMATION
  Report Type: 
  Country: None (occurrence: None)
  Receive Date: 20061213
  Receipt Date: 20051101
  Transmission Date: 20070707
  Serious: Yes (Other)
  Sender: FDA-Public Use
  Company Number: 2005UW16548

PATIENT
  Sex: Female

DRUGS (6)
  1. IRESSA [Suspect]
     Indication: NON-SMALL CELL LUNG CANCER
  2. LIPITOR [Concomitant]
  3. MECLIZINE [Concomitant]
  4. IMIPRAMINE [Concomitant]
  5. AMBIEN [Concomitant]
  6. NEXIUM [Concomitant]

REACTIONS (3)
  - DIZZINESS [None]
  - EYE PAIN [None]
  - HEADACHE [None]
